FAERS Safety Report 20554456 (Version 1)
Quarter: 2022Q1

REPORT INFORMATION
  Report Type: Other
  Country: DE (occurrence: DE)
  Receive Date: 20220304
  Receipt Date: 20220304
  Transmission Date: 20220423
  Serious: Yes (Life-Threatening, Other)
  Sender: FDA-Public Use
  Company Number: DE-DCGMA-22196637

PATIENT
  Age: 72 Year
  Sex: Male
  Weight: 110 kg

DRUGS (3)
  1. IOHEXOL [Suspect]
     Active Substance: IOHEXOL
     Indication: Stent placement
     Dosage: 250 ML, SINGLE
     Route: 042
     Dates: start: 20210921, end: 20210921
  2. IOHEXOL [Suspect]
     Active Substance: IOHEXOL
     Indication: Catheterisation cardiac
  3. IOHEXOL [Suspect]
     Active Substance: IOHEXOL
     Indication: Product used for unknown indication

REACTIONS (4)
  - Cardiogenic shock [Unknown]
  - Coronary artery thrombosis [Unknown]
  - Ventricular fibrillation [Unknown]
  - Anaphylactic shock [Unknown]

NARRATIVE: CASE EVENT DATE: 20210921
